FAERS Safety Report 8965380 (Version 2)
Quarter: 2013Q1

REPORT INFORMATION
  Report Type: Spontaneous
  Country: US (occurrence: US)
  Receive Date: 20121214
  Receipt Date: 20130228
  Transmission Date: 20140127
  Serious: Yes (Other)
  Sender: FDA-Public Use
  Company Number: US-UCBSA-072859

PATIENT
  Sex: Female

DRUGS (6)
  1. CIMZIA [Suspect]
     Indication: RHEUMATOID ARTHRITIS
     Dosage: 200 MG PER SYRINGE; FROM APPROXIMATELY 7 YEARS
     Dates: end: 201211
  2. ACETAMINOPHEN/CODEINE [Concomitant]
     Indication: PAIN
     Dosage: 300/30 MG (TAKES 1/4) TABLET AS NEEDED Q 5 HOURS
  3. AMLODIPINE [Concomitant]
     Indication: HYPERTENSION
     Dosage: 10 MG DAILY
  4. PRAVASTATIN [Concomitant]
     Indication: HYPERCHOLESTEROLAEMIA
     Dosage: 10 MG DAILY
  5. METHOTREXATE [Concomitant]
     Indication: PROPHYLAXIS
  6. METHOTREXATE [Concomitant]
     Indication: PROPHYLAXIS
     Dosage: 7.5 MG WEEKLY

REACTIONS (3)
  - Herpes zoster [Recovered/Resolved]
  - Post herpetic neuralgia [Recovering/Resolving]
  - Drug dose omission [Unknown]
